FAERS Safety Report 7804506-4 (Version None)
Quarter: 2011Q4

REPORT INFORMATION
  Report Type: 
  Country: None (occurrence: None)
  Receive Date: 20111010
  Receipt Date: 20110927
  Transmission Date: 20120403
  Serious: Yes (Other)
  Sender: FDA-Public Use
  Company Number: PHHY2011JP56520

PATIENT
  Age: 86 Year
  Sex: Female

DRUGS (3)
  1. DIOVAN [Suspect]
     Indication: HYPERTENSION
     Dosage: 80 MG, QD
     Route: 048
     Dates: start: 20070204
  2. LIPITOR [Concomitant]
     Dosage: 10 MG, UNK
     Route: 048
  3. AMARYL [Concomitant]
     Dosage: 2 MG, UNK
     Route: 048

REACTIONS (1)
  - DEMENTIA [None]
